FAERS Safety Report 15970973 (Version 16)
Quarter: 2019Q4

REPORT INFORMATION
  Report Type: Report from Study
  Country: US (occurrence: US)
  Receive Date: 20190215
  Receipt Date: 20191025
  Transmission Date: 20200122
  Serious: Yes (Death, Life-Threatening, Hospitalization)
  Sender: FDA-Public Use
  Company Number: US-GILEAD-2019-0383269

PATIENT
  Age: 52 Year
  Sex: Male
  Weight: 98.2 kg

DRUGS (109)
  1. HYDROMORPHONE HCL [Concomitant]
     Active Substance: HYDROMORPHONE HYDROCHLORIDE
     Dosage: UNK, PRN
     Dates: start: 201810, end: 20190415
  2. ALLOPURINOL. [Concomitant]
     Active Substance: ALLOPURINOL
     Dosage: TWICE DAILY
     Dates: start: 201810, end: 20190415
  3. ERGOCALCIFEROL. [Concomitant]
     Active Substance: ERGOCALCIFEROL
     Dosage: OTHER
     Dates: start: 201811, end: 20190415
  4. POTASSIUM CHLORIDE. [Concomitant]
     Active Substance: POTASSIUM CHLORIDE
     Dosage: UNK
     Dates: start: 20190126, end: 20190131
  5. ACETAMINOPHEN. [Concomitant]
     Active Substance: ACETAMINOPHEN
     Dosage: UNK, ONCE
     Dates: start: 20190105, end: 20190415
  6. POTASSIUM PHOSPHATE DIBASIC;SODIUM [Concomitant]
     Dosage: UNK
     Dates: start: 20190316, end: 20190316
  7. METOPROLOL TARTRATE. [Concomitant]
     Active Substance: METOPROLOL TARTRATE
     Dosage: UNK, BID
     Dates: start: 20190128, end: 20190415
  8. SODIUM PHOSPHATE [Concomitant]
     Active Substance: SODIUM PHOSPHATE
     Dosage: UNK
     Dates: start: 20190103, end: 20190104
  9. DAPTOMYCIN. [Concomitant]
     Active Substance: DAPTOMYCIN
     Dosage: UNK, QD
     Dates: start: 20190124, end: 20190305
  10. CALCIUM GLUCONATE. [Concomitant]
     Active Substance: CALCIUM GLUCONATE
     Dosage: UNK, ONCE
     Dates: start: 20190107, end: 20190107
  11. MAGNESIUM OXIDE. [Concomitant]
     Active Substance: MAGNESIUM OXIDE
     Dosage: UNK, BID
     Dates: start: 20190104, end: 20190107
  12. POSACONAZOLE [Concomitant]
     Active Substance: POSACONAZOLE
     Dosage: UNK, QD
     Dates: start: 20190123, end: 20190126
  13. FUROSEMIDE. [Concomitant]
     Active Substance: FUROSEMIDE
     Dosage: UNK
     Dates: start: 20190301, end: 20190301
  14. CEFEPIME [Concomitant]
     Active Substance: CEFEPIME HYDROCHLORIDE
     Dosage: UNK, BID
     Dates: start: 20190125, end: 20190126
  15. LINEZOLID. [Concomitant]
     Active Substance: LINEZOLID
     Dosage: UNK, ONCE
     Dates: start: 20190128, end: 20190128
  16. OXYMETAZOLINE [Concomitant]
     Active Substance: OXYMETAZOLINE
     Dosage: UNK, TID
     Dates: start: 20190131, end: 20190201
  17. CYCLOPHOSPHAMIDE. [Suspect]
     Active Substance: CYCLOPHOSPHAMIDE
     Indication: BONE MARROW CONDITIONING REGIMEN
     Dosage: ^1085,^ QD
     Route: 042
     Dates: start: 20190119, end: 20190121
  18. FAMOTIDINE. [Concomitant]
     Active Substance: FAMOTIDINE
     Dosage: DAILY
     Dates: start: 201810, end: 20190415
  19. IPRATROPIUM BROMIDE. [Concomitant]
     Active Substance: IPRATROPIUM BROMIDE
     Dosage: AS NECESSARY
     Dates: start: 20190127, end: 20190415
  20. NYSTATIN. [Concomitant]
     Active Substance: NYSTATIN
     Dosage: UNK, QID
     Dates: start: 20190124, end: 20190124
  21. DAPTOMYCIN. [Concomitant]
     Active Substance: DAPTOMYCIN
     Dosage: DAILY
     Dates: start: 20190312, end: 20190319
  22. CALCIUM GLUCONATE. [Concomitant]
     Active Substance: CALCIUM GLUCONATE
     Dosage: UNK
     Dates: start: 20190202, end: 20190205
  23. CALCIUM GLUCONATE. [Concomitant]
     Active Substance: CALCIUM GLUCONATE
     Dosage: ONCE
     Dates: start: 20190316, end: 20190316
  24. METRONIDAZOLE. [Concomitant]
     Active Substance: METRONIDAZOLE
     Dosage: UNK, TID
     Dates: start: 20190126, end: 20190204
  25. PERAMIVIR [Concomitant]
     Active Substance: PERAMIVIR
     Dosage: UNK, QD
     Dates: start: 20190127, end: 20190131
  26. ISAVUCONAZONIUM SULFATE [Concomitant]
     Active Substance: ISAVUCONAZONIUM SULFATE
     Dosage: DAILY
     Dates: start: 20190217, end: 20190322
  27. CAPTOPRIL. [Suspect]
     Active Substance: CAPTOPRIL
     Dosage: UNK
     Route: 065
     Dates: start: 20190228, end: 20190306
  28. FINASTERIDE. [Concomitant]
     Active Substance: FINASTERIDE
     Dosage: DAILY
     Dates: start: 201810, end: 20190415
  29. HYDROMORPHONE [Concomitant]
     Active Substance: HYDROMORPHONE
     Dosage: UNK, ONCE
     Dates: start: 20190128, end: 20190129
  30. POTASSIUM PHOSPHATE DIBASIC;SODIUM [Concomitant]
     Dosage: UNK, QD
     Dates: start: 20190106, end: 20190415
  31. VANCOMYCIN [Concomitant]
     Active Substance: VANCOMYCIN
     Dosage: FOUR TIMES DAILY
     Dates: start: 20190124, end: 20190415
  32. ATOVAQUONE. [Concomitant]
     Active Substance: ATOVAQUONE
     Dosage: DAILY
     Dates: start: 20190124, end: 20190415
  33. MEROPENEM. [Concomitant]
     Active Substance: MEROPENEM
     Dosage: THREE TIMES DAILY
     Dates: start: 20190126, end: 20190415
  34. PROCHLORPERAZINE. [Concomitant]
     Active Substance: PROCHLORPERAZINE
     Dosage: AS NECESSARY
     Dates: start: 20190126, end: 20190415
  35. GRANIX [Concomitant]
     Active Substance: TBO-FILGRASTIM
     Dosage: UNK
     Dates: start: 20190225, end: 20190415
  36. PHYTONADIONE. [Concomitant]
     Active Substance: PHYTONADIONE
     Dosage: UNK, QD
     Dates: start: 20190123, end: 20190124
  37. SEVELAMER CARBONATE. [Concomitant]
     Active Substance: SEVELAMER CARBONATE
     Dosage: UNK, QD
     Dates: start: 20190123, end: 20190126
  38. ALTEPLASE. [Concomitant]
     Active Substance: ALTEPLASE
     Dosage: UNK, ONCE (^CATH CLEARANCE^)
     Dates: start: 20190123, end: 20190131
  39. OFIRMEV [Concomitant]
     Active Substance: ACETAMINOPHEN
     Dosage: UNK, TID
     Dates: start: 20190129, end: 20190211
  40. BALOXAVIR MARBOXIL. [Concomitant]
     Active Substance: BALOXAVIR MARBOXIL
     Dosage: UNK, ONCE
     Dates: start: 20190129, end: 20190206
  41. SULFAMETHOXAZOLE AND TRIMETHOPRIM [Concomitant]
     Active Substance: SULFAMETHOXAZOLE\TRIMETHOPRIM
     Dosage: UNK
     Dates: start: 201810, end: 20190415
  42. POTASSIUM CHLORIDE. [Concomitant]
     Active Substance: POTASSIUM CHLORIDE
     Dosage: UNK
     Dates: start: 20190124, end: 20190206
  43. SODIUM CHLORIDE. [Concomitant]
     Active Substance: SODIUM CHLORIDE
     Dosage: UNK, QID
     Dates: start: 20190129, end: 20190205
  44. LOPERAMIDE [Concomitant]
     Active Substance: LOPERAMIDE
     Dosage: UNK, PRN
     Dates: start: 20190107, end: 20190109
  45. GRANIX [Concomitant]
     Active Substance: TBO-FILGRASTIM
     Dosage: UNK, QD
     Dates: start: 20190124, end: 20190206
  46. NYSTATIN. [Concomitant]
     Active Substance: NYSTATIN
     Dosage: FOUR TIMES DAILY
     Dates: start: 20190301, end: 20190415
  47. PHYTONADIONE. [Concomitant]
     Active Substance: PHYTONADIONE
     Dosage: UNK
     Dates: start: 20190129, end: 20190131
  48. ALBUMIN HUMAN [Concomitant]
     Active Substance: ALBUMIN HUMAN
     Dosage: UNK, QID
     Dates: start: 20190125, end: 20190127
  49. FOSCARNET [Suspect]
     Active Substance: FOSCARNET
     Indication: PRODUCT USED FOR UNKNOWN INDICATION
     Dosage: 5000 MG, Q 12 HOURS
     Route: 042
     Dates: start: 20190225, end: 20190327
  50. METOPROLOL SUCCINATE. [Concomitant]
     Active Substance: METOPROLOL SUCCINATE
     Dosage: UNK, QD
     Dates: start: 201810, end: 20190415
  51. ERGOCALCIFEROL. [Concomitant]
     Active Substance: ERGOCALCIFEROL
     Dosage: DAILY
     Dates: start: 20190321, end: 20190415
  52. POTASSIUM CHLORIDE. [Concomitant]
     Active Substance: POTASSIUM CHLORIDE
     Dosage: UNK, ONCE
     Dates: start: 20190202, end: 20190202
  53. MAGNESIUM [Concomitant]
     Active Substance: MAGNESIUM
     Dosage: DAILY
     Dates: start: 20181224, end: 20190415
  54. PANTOPRAZOLE [Concomitant]
     Active Substance: PANTOPRAZOLE
     Dosage: DAILY
     Dates: start: 20190114, end: 20190415
  55. ZANAMIVIR [Concomitant]
     Active Substance: ZANAMIVIR
     Dosage: TWICE DAILY
     Dates: start: 20190201, end: 20190415
  56. SODIUM CHLORIDE. [Concomitant]
     Active Substance: SODIUM CHLORIDE
     Dosage: UNK, PRN
     Dates: start: 20190105, end: 20190105
  57. LOPERAMIDE [Concomitant]
     Active Substance: LOPERAMIDE
     Dosage: UNK, ONCE
     Dates: start: 20190204, end: 20190204
  58. CALCIUM GLUCONATE. [Concomitant]
     Active Substance: CALCIUM GLUCONATE
     Dosage: UNK
     Dates: start: 20190127, end: 20190127
  59. CALCIUM GLUCONATE. [Concomitant]
     Active Substance: CALCIUM GLUCONATE
     Dosage: UNK
     Dates: start: 20190202, end: 20190204
  60. CALCITRIOL. [Concomitant]
     Active Substance: CALCITRIOL
     Dosage: TWICE DAILY
     Dates: start: 20190321, end: 20190415
  61. GUAIFENESIN AND DEXTROMETHORPHAN [Concomitant]
     Active Substance: DEXTROMETHORPHAN\GUAIFENESIN
     Dosage: UNK, PRN
     Dates: start: 20190105, end: 20190109
  62. ENOXAPARIN [Concomitant]
     Active Substance: ENOXAPARIN
     Dosage: UNK, BID
     Dates: start: 20190123, end: 20190126
  63. CALCIUM ACETATE. [Concomitant]
     Active Substance: CALCIUM ACETATE
     Dosage: UNK, QD
     Dates: start: 20190124, end: 20190126
  64. TORSEMIDE. [Concomitant]
     Active Substance: TORSEMIDE
     Dosage: UNK, ONCE
     Dates: start: 20190201, end: 20190203
  65. FLUDARABINE [Suspect]
     Active Substance: FLUDARABINE PHOSPHATE
     Indication: BONE MARROW CONDITIONING REGIMEN
     Dosage: ^65.1,^ QD
     Route: 042
     Dates: start: 20190119, end: 20190121
  66. FOSCARNET [Suspect]
     Active Substance: FOSCARNET
     Dosage: UNK
     Route: 042
     Dates: start: 20190327, end: 20190329
  67. ONDANSETRON [Concomitant]
     Active Substance: ONDANSETRON
     Dosage: AS NECESSARY
     Dates: start: 201810, end: 20190415
  68. POTASSIUM CHLORIDE. [Concomitant]
     Active Substance: POTASSIUM CHLORIDE
     Dosage: DAILY
     Dates: start: 20181221, end: 20190415
  69. MAGNESIUM SULFATE. [Concomitant]
     Active Substance: MAGNESIUM SULFATE
     Dosage: OTHER
     Dates: start: 20190103, end: 20190415
  70. POTASSIUM PHOSPHATE DIBASIC;SODIUM [Concomitant]
     Dosage: UNK
     Dates: start: 20190128, end: 20190203
  71. PANTOPRAZOLE [Concomitant]
     Active Substance: PANTOPRAZOLE
     Dosage: DAILY
     Dates: start: 20190123, end: 20190415
  72. SODIUM CHLORIDE. [Concomitant]
     Active Substance: SODIUM CHLORIDE
     Dosage: TWICE DAILY
     Dates: start: 20190123, end: 20190415
  73. SODIUM CHLORIDE. [Concomitant]
     Active Substance: SODIUM CHLORIDE
     Dosage: FOUR TIMES DAILY
     Dates: start: 20190202, end: 20190415
  74. SODIUM BICARBONATE. [Concomitant]
     Active Substance: SODIUM BICARBONATE
     Dosage: FOUR TIMES DAILY
     Dates: start: 20190204, end: 20190415
  75. CALCIUM GLUCONATE. [Concomitant]
     Active Substance: CALCIUM GLUCONATE
     Dosage: UNK
     Dates: start: 20190130, end: 20190202
  76. FENTANYL. [Concomitant]
     Active Substance: FENTANYL
     Dosage: UNK, PRN
     Dates: start: 20190107, end: 20190107
  77. FUROSEMIDE. [Concomitant]
     Active Substance: FUROSEMIDE
     Dosage: UNK, ONCE
     Dates: start: 20190124, end: 20190207
  78. AXICABTAGENE CILOLEUCEL [Suspect]
     Active Substance: AXICABTAGENE CILOLEUCEL
     Indication: DIFFUSE LARGE B-CELL LYMPHOMA
     Dosage: 68
     Route: 042
     Dates: start: 20190207, end: 20190207
  79. CAPTOPRIL. [Suspect]
     Active Substance: CAPTOPRIL
     Indication: PRODUCT USED FOR UNKNOWN INDICATION
     Dosage: 37.5 MG, TID
     Route: 048
     Dates: start: 20190311, end: 20190415
  80. ZOLPIDEM TARTRATE. [Concomitant]
     Active Substance: ZOLPIDEM TARTRATE
     Dosage: AS NECESSARY
     Dates: start: 201810, end: 20190415
  81. CALCIUM CARBONATE. [Concomitant]
     Active Substance: CALCIUM CARBONATE
     Dosage: TWICE DAILY
     Dates: start: 201811, end: 20190415
  82. HYDROMORPHONE [Concomitant]
     Active Substance: HYDROMORPHONE
     Dosage: AS NECESSARY
     Dates: start: 20190104, end: 20190415
  83. DESITIN [ZINC OXIDE] [Concomitant]
     Dosage: UNK, PRN
     Dates: start: 20190201, end: 20190415
  84. CALCIUM GLUCONATE. [Concomitant]
     Active Substance: CALCIUM GLUCONATE
     Dosage: DAILY
     Dates: start: 20190320, end: 20190321
  85. LEVOFLOXACIN. [Concomitant]
     Active Substance: LEVOFLOXACIN
     Dosage: UNK, QD
     Dates: start: 20190104, end: 20190104
  86. MIRTAZAPINE. [Concomitant]
     Active Substance: MIRTAZAPINE
     Dosage: UNK, QD
     Dates: start: 20190125, end: 20190125
  87. IMMUNE GLOBULIN [Concomitant]
     Dosage: UNK, ONCE
     Dates: start: 20190128, end: 20190128
  88. OFIRMEV [Concomitant]
     Active Substance: ACETAMINOPHEN
     Dosage: UNK, PRN
     Dates: start: 20190129, end: 20190129
  89. FLUTICASONE. [Concomitant]
     Active Substance: FLUTICASONE
     Dosage: UNK, BID
     Dates: start: 20190129, end: 20190205
  90. ACYCLOVIR [ACICLOVIR] [Concomitant]
     Active Substance: ACYCLOVIR
     Dosage: TWICE DAILY
     Dates: start: 201810, end: 20190415
  91. TAMSULOSIN HCL [Concomitant]
     Active Substance: TAMSULOSIN HYDROCHLORIDE
     Dosage: UNK, QD
     Dates: start: 201810, end: 20190415
  92. GABAPENTIN. [Concomitant]
     Active Substance: GABAPENTIN
     Dosage: THREE TIMES DAILY
     Dates: start: 201810, end: 20190415
  93. BACLOFEN. [Concomitant]
     Active Substance: BACLOFEN
     Dosage: THREE TIMES DAILY
     Dates: start: 201810, end: 20190415
  94. POTASSIUM CHLORIDE. [Concomitant]
     Active Substance: POTASSIUM CHLORIDE
     Dosage: UNK, ONCE
     Dates: start: 20190131, end: 20190203
  95. VANCOMYCIN [Concomitant]
     Active Substance: VANCOMYCIN
     Dosage: FOUR TIMES DAILY
     Dates: start: 20190123, end: 20190415
  96. MICONAZOLE NITRATE. [Concomitant]
     Active Substance: MICONAZOLE NITRATE
     Dosage: TWICE DAILY
     Dates: start: 20190125, end: 20190415
  97. IPRATROPIUM BROMIDE. [Concomitant]
     Active Substance: IPRATROPIUM BROMIDE
     Dosage: AS NECESSARY
     Dates: start: 20190206, end: 20190415
  98. SODIUM CHLORIDE. [Concomitant]
     Active Substance: SODIUM CHLORIDE
     Dosage: TWICE DAILY
     Dates: start: 20190114, end: 20190415
  99. SODIUM CHLORIDE. [Concomitant]
     Active Substance: SODIUM CHLORIDE
     Dosage: FOUR TIMES DAILY
     Dates: start: 20190204, end: 20190415
  100. SODIUM BICARBONATE. [Concomitant]
     Active Substance: SODIUM BICARBONATE
     Dosage: UNK, BID
     Dates: start: 20190126, end: 20190201
  101. LOPERAMIDE [Concomitant]
     Active Substance: LOPERAMIDE
     Dosage: THREE TIMES DAILY
     Dates: start: 20190219, end: 20190415
  102. MIDAZOLAM [Concomitant]
     Active Substance: MIDAZOLAM HYDROCHLORIDE
     Dosage: UNK
     Dates: start: 20190107, end: 20190107
  103. OSELTAMIVIR [Concomitant]
     Active Substance: OSELTAMIVIR
     Dosage: UNK, QD
     Dates: start: 20190123, end: 20190126
  104. POSACONAZOLE [Concomitant]
     Active Substance: POSACONAZOLE
     Dosage: UNK
     Dates: start: 20190127, end: 20190206
  105. CLOTRIMAZOLE. [Concomitant]
     Active Substance: CLOTRIMAZOLE
     Dosage: UNK
     Dates: start: 20190124, end: 20190129
  106. FUROSEMIDE. [Concomitant]
     Active Substance: FUROSEMIDE
     Dosage: UNK
     Dates: start: 20190302, end: 20190302
  107. ALBUMIN HUMAN [Concomitant]
     Active Substance: ALBUMIN HUMAN
     Dosage: UNK, ONCE
     Dates: start: 20190202, end: 20190202
  108. OFIRMEV [Concomitant]
     Active Substance: ACETAMINOPHEN
     Dosage: UNK, QID
     Dates: start: 20190128, end: 20190131
  109. OXYMETAZOLINE [Concomitant]
     Active Substance: OXYMETAZOLINE
     Dosage: UNK, BID
     Dates: start: 20190129, end: 20190130

REACTIONS (10)
  - CAR T-cell-related encephalopathy syndrome [Recovered/Resolved]
  - Acute kidney injury [Recovered/Resolved]
  - Ejection fraction decreased [Recovered/Resolved]
  - B-cell lymphoma [Fatal]
  - Blood creatinine increased [Recovered/Resolved]
  - Cytokine release syndrome [Recovered/Resolved]
  - Cytokine release syndrome [Recovered/Resolved]
  - Suprapubic pain [Recovered/Resolved with Sequelae]
  - Acute kidney injury [Not Recovered/Not Resolved]
  - Visual impairment [Not Recovered/Not Resolved]

NARRATIVE: CASE EVENT DATE: 20190208
